FAERS Safety Report 7814039-7 (Version None)
Quarter: 2011Q4

REPORT INFORMATION
  Report Type: 
  Country: None (occurrence: None)
  Receive Date: 20111014
  Receipt Date: 20111004
  Transmission Date: 20120403
  Serious: Yes (Hospitalization, Other)
  Sender: FDA-Public Use
  Company Number: US-JNJFOC-20111002593

PATIENT
  Sex: Male

DRUGS (17)
  1. SPIRIVA [Concomitant]
     Indication: CHRONIC OBSTRUCTIVE PULMONARY DISEASE
     Route: 055
  2. LORAZEPAM [Concomitant]
     Indication: SLEEP DISORDER
     Route: 048
  3. OXYCODONE/ACETAMINOPHEN [Concomitant]
     Indication: PAIN
     Dosage: 5-325 MG
     Route: 048
  4. GINSENG [Concomitant]
     Indication: MEDICAL DIET
     Route: 048
  5. DULERA ORAL INHALATION [Concomitant]
     Indication: CHRONIC OBSTRUCTIVE PULMONARY DISEASE
     Route: 055
  6. MAGNESIUM [Concomitant]
     Indication: MEDICAL DIET
     Route: 048
  7. ALBUTEROL [Concomitant]
     Indication: CHRONIC OBSTRUCTIVE PULMONARY DISEASE
     Route: 055
  8. ASCORBIC ACID [Concomitant]
     Indication: MEDICAL DIET
     Route: 048
  9. FENTANYL [Suspect]
     Route: 062
     Dates: start: 20100101, end: 20110101
  10. OMEPRAZOLE [Concomitant]
     Indication: DYSPEPSIA
     Route: 048
  11. FATTY ACIDS NOS [Concomitant]
     Indication: MEDICAL DIET
     Route: 048
  12. MULTI-VITAMINS [Concomitant]
     Indication: MEDICAL DIET
     Route: 048
  13. FENTANYL [Suspect]
     Indication: BACK PAIN
     Route: 062
     Dates: start: 20110101
  14. CALCIUM CARBONATE [Concomitant]
     Indication: NUTRITIONAL SUPPORT
     Route: 048
  15. VITAMIN D [Concomitant]
     Indication: VITAMIN SUPPLEMENTATION
     Route: 048
  16. LOVAZA [Concomitant]
     Indication: MEDICAL DIET
  17. PERCOCET [Concomitant]
     Indication: BREAKTHROUGH PAIN
     Route: 048

REACTIONS (20)
  - WEIGHT DECREASED [None]
  - CATARACT [None]
  - TREMOR [None]
  - APPLICATION SITE EXFOLIATION [None]
  - PAIN [None]
  - CHRONIC OBSTRUCTIVE PULMONARY DISEASE [None]
  - EATING DISORDER [None]
  - CONSTIPATION [None]
  - SPEECH DISORDER [None]
  - INAPPROPRIATE SCHEDULE OF DRUG ADMINISTRATION [None]
  - WRONG TECHNIQUE IN DRUG USAGE PROCESS [None]
  - FEELING OF BODY TEMPERATURE CHANGE [None]
  - NERVOUSNESS [None]
  - PRODUCT QUALITY ISSUE [None]
  - WITHDRAWAL SYNDROME [None]
  - FEELING ABNORMAL [None]
  - DRUG ADMINISTERED AT INAPPROPRIATE SITE [None]
  - THERAPEUTIC RESPONSE DECREASED [None]
  - MUSCLE TWITCHING [None]
  - HYPERHIDROSIS [None]
